FAERS Safety Report 4918266-8 (Version None)
Quarter: 2006Q1

REPORT INFORMATION
  Report Type: 
  Country: None (occurrence: None)
  Receive Date: 20060222
  Receipt Date: 20040604
  Transmission Date: 20060701
  Serious: Yes (Death, Other)
  Sender: FDA-Public Use
  Company Number: 2003-12-1725

PATIENT
  Age: 91 Year
  Sex: Male

DRUGS (1)
  1. BUPRENORPHINE HCL [Suspect]
     Indication: DRUG USE FOR UNKNOWN INDICATION
     Route: 060
     Dates: start: 20031201, end: 20031216

REACTIONS (3)
  - INJURY [None]
  - MEDICATION ERROR [None]
  - PNEUMONIA [None]
